FAERS Safety Report 5892393-3 (Version None)
Quarter: 2008Q3

REPORT INFORMATION
  Report Type: 
  Country: None (occurrence: None)
  Receive Date: 20080919
  Receipt Date: 20080919
  Transmission Date: 20090109
  Serious: Yes (Other)
  Sender: FDA-Public Use
  Company Number: None

PATIENT

DRUGS (1)
  1. CIPROFLOXACIN [Suspect]
     Indication: PROSTATE INFECTION
     Dosage: 2 TABLETS DAILY PO
     Route: 048
     Dates: start: 20080714, end: 20080723

REACTIONS (6)
  - ARTHRALGIA [None]
  - DIZZINESS [None]
  - HERPES ZOSTER [None]
  - IMMUNE SYSTEM DISORDER [None]
  - NAUSEA [None]
  - TENDONITIS [None]
